FAERS Safety Report 12101641 (Version 1)
Quarter: 2016Q1

REPORT INFORMATION
  Report Type: Spontaneous
  Country: JP (occurrence: JP)
  Receive Date: 20160222
  Receipt Date: 20160222
  Transmission Date: 20160526
  Serious: Yes (Death, Hospitalization, Other)
  Sender: FDA-Public Use
  Company Number: JP-MEDA-2015120087

PATIENT
  Age: 78 Year
  Sex: Female

DRUGS (2)
  1. LUPRAC [Suspect]
     Active Substance: TORSEMIDE
     Indication: CARDIOVASCULAR DISORDER
     Route: 048
     Dates: start: 2014
  2. TAKELDA [Concomitant]
     Active Substance: ASPIRIN\LANSOPRAZOLE

REACTIONS (2)
  - Asphyxia [Fatal]
  - Deafness [Not Recovered/Not Resolved]

NARRATIVE: CASE EVENT DATE: 201511
